FAERS Safety Report 5563719-5 (Version None)
Quarter: 2007Q4

REPORT INFORMATION
  Report Type: 
  Country: None (occurrence: None)
  Receive Date: 20071217
  Receipt Date: 20071207
  Transmission Date: 20080405
  Serious: Yes (Hospitalization)
  Sender: FDA-Public Use
  Company Number: FR-ELI_LILLY_AND_COMPANY-FR200712002006

PATIENT
  Sex: Female

DRUGS (5)
  1. FORTEO [Suspect]
     Indication: OSTEOPOROSIS
     Dosage: 20 UG, DAILY (1/D)
     Route: 058
     Dates: start: 20070723, end: 20071130
  2. CORTANCYL [Concomitant]
     Dosage: 2 D/F, DAILY (1/D)
     Route: 048
  3. CEBUTID [Concomitant]
     Dosage: 1 D/F, DAILY (1/D)
     Route: 048
  4. ANAFRANIL [Concomitant]
     Dosage: 2 D/F, DAILY (1/D)
     Route: 048
  5. TRAMADOL HCL [Concomitant]
     Dosage: 2 D/F, DAILY (1/D)
     Route: 048

REACTIONS (1)
  - PYELONEPHRITIS [None]
